FAERS Safety Report 15631467 (Version 2)
Quarter: 2019Q1

REPORT INFORMATION
  Report Type: Report from Study
  Country: US (occurrence: US)
  Receive Date: 20181119
  Receipt Date: 20190110
  Transmission Date: 20190417
  Serious: Yes (Hospitalization)
  Sender: FDA-Public Use
  Company Number: US-ROCHE-2215424

PATIENT
  Age: 67 Year
  Sex: Female
  Weight: 47.1 kg

DRUGS (12)
  1. GUAIFENESIN. [Concomitant]
     Active Substance: GUAIFENESIN
  2. LORATADINE. [Concomitant]
     Active Substance: LORATADINE
  3. BUPROPION. [Concomitant]
     Active Substance: BUPROPION
  4. FIBER [Concomitant]
     Active Substance: PSYLLIUM HUSK
  5. RANITIDINE. [Concomitant]
     Active Substance: RANITIDINE
  6. PIRFENIDONE. [Suspect]
     Active Substance: PIRFENIDONE
     Indication: SYSTEMIC SCLEROSIS PULMONARY
     Route: 065
     Dates: end: 20180716
  7. PREDNISONE. [Concomitant]
     Active Substance: PREDNISONE
  8. ONDANSETRON [Concomitant]
     Active Substance: ONDANSETRON
  9. MYCOPHENOLATE MOFETIL. [Suspect]
     Active Substance: MYCOPHENOLATE MOFETIL
     Indication: SYSTEMIC SCLEROSIS PULMONARY
     Dosage: 5 CAPSULE
     Route: 048
     Dates: start: 20180523
  10. DIAZEPAM. [Concomitant]
     Active Substance: DIAZEPAM
  11. ESOMEPRAZOLE. [Concomitant]
     Active Substance: ESOMEPRAZOLE MAGNESIUM
  12. MIRTAZAPINE. [Concomitant]
     Active Substance: MIRTAZAPINE

REACTIONS (1)
  - Scleroderma renal crisis [Recovered/Resolved with Sequelae]

NARRATIVE: CASE EVENT DATE: 20181017
